FAERS Safety Report 11652699 (Version 5)
Quarter: 2016Q1

REPORT INFORMATION
  Report Type: Spontaneous
  Country: US (occurrence: US)
  Receive Date: 20151022
  Receipt Date: 20160115
  Transmission Date: 20160525
  Serious: No
  Sender: FDA-Public Use
  Company Number: US-GLAXOSMITHKLINE-US2015GSK149837

PATIENT
  Age: 62 Year
  Sex: Female

DRUGS (8)
  1. TANZEUM [Suspect]
     Active Substance: ALBIGLUTIDE
     Indication: TYPE 2 DIABETES MELLITUS
     Dosage: 30 MG, WE
     Route: 042
     Dates: start: 20151019
  2. METFORMIN [Concomitant]
     Active Substance: METFORMIN HYDROCHLORIDE
  3. ZOFRAN [Concomitant]
     Active Substance: ONDANSETRON HYDROCHLORIDE
  4. PROBIOTIC [Concomitant]
     Active Substance: PROBIOTICS NOS
  5. MULTIVITAMIN [Concomitant]
     Active Substance: VITAMINS
  6. LISINOPRIL. [Concomitant]
     Active Substance: LISINOPRIL
  7. VITAMIN C [Concomitant]
     Active Substance: ASCORBIC ACID
  8. FOLIC ACID. [Concomitant]
     Active Substance: FOLIC ACID

REACTIONS (8)
  - Tremor [Not Recovered/Not Resolved]
  - Product preparation error [Unknown]
  - Hypertension [Not Recovered/Not Resolved]
  - Hyperhidrosis [Not Recovered/Not Resolved]
  - Feeling abnormal [Unknown]
  - Blood glucose decreased [Not Recovered/Not Resolved]
  - Nausea [Not Recovered/Not Resolved]
  - Device use error [Unknown]

NARRATIVE: CASE EVENT DATE: 201510
